FAERS Safety Report 10575552 (Version 2)
Quarter: 2014Q4

REPORT INFORMATION
  Report Type: Spontaneous
  Country: US (occurrence: US)
  Receive Date: 20141111
  Receipt Date: 20141202
  Transmission Date: 20150529
  Serious: No
  Sender: FDA-Public Use
  Company Number: US-BAYER-2014-163393

PATIENT
  Age: 64 Year
  Sex: Female

DRUGS (1)
  1. FINACEA [Suspect]
     Active Substance: AZELAIC ACID
     Indication: PRODUCT USED FOR UNKNOWN INDICATION
     Dosage: UNK UNK, BID
     Route: 061
     Dates: start: 20141006

REACTIONS (2)
  - Application site pain [Not Recovered/Not Resolved]
  - Inflammation [None]
